FAERS Safety Report 9620837 (Version 1)
Quarter: 2013Q4

REPORT INFORMATION
  Report Type: Spontaneous
  Country: GR (occurrence: GR)
  Receive Date: 20131015
  Receipt Date: 20131015
  Transmission Date: 20140711
  Serious: Yes (Other)
  Sender: FDA-Public Use
  Company Number: GR-ROCHE-1288682

PATIENT
  Age: 40 Year
  Sex: Male

DRUGS (1)
  1. RANIBIZUMAB [Suspect]
     Indication: CHORIORETINOPATHY
     Route: 050

REACTIONS (3)
  - Retinal deposits [Unknown]
  - Visual acuity reduced [Unknown]
  - Drug ineffective [Unknown]
